FAERS Safety Report 23469745 (Version 1)
Quarter: 2024Q1

REPORT INFORMATION
  Report Type: Spontaneous
  Country: FR (occurrence: FR)
  Receive Date: 20240202
  Receipt Date: 20240202
  Transmission Date: 20240410
  Serious: No
  Sender: FDA-Public Use
  Company Number: FR-ALKEM LABORATORIES LIMITED-FR-ALKEM-2023-13450

PATIENT
  Age: 36 Year
  Sex: Female

DRUGS (2)
  1. EZETIMIBE [Suspect]
     Active Substance: EZETIMIBE
     Indication: Cholelithiasis
     Dosage: 10 MG/DAY (DAILY)
     Route: 065
  2. URSODIOL [Suspect]
     Active Substance: URSODIOL
     Indication: Cholelithiasis
     Dosage: 15 MILLIGRAM/KILOGRAM, QD (PER DAY) (DAILY)
     Route: 065

REACTIONS (1)
  - Drug ineffective [Unknown]
